FAERS Safety Report 24084205 (Version 1)
Quarter: 2024Q3

REPORT INFORMATION
  Report Type: Spontaneous
  Country: US (occurrence: None)
  Receive Date: 20240711
  Receipt Date: 20240711
  Transmission Date: 20241017
  Serious: Yes (Hospitalization)
  Sender: Public
  Company Number: None

PATIENT
  Age: 31 Year
  Sex: Female
  Weight: 64.35 kg

DRUGS (7)
  1. DIVALPROEX SODIUM [Suspect]
     Active Substance: DIVALPROEX SODIUM
     Indication: Seizure
     Dosage: 750 MG TWICE A DAY ORAL
     Route: 048
  2. DIVALPROEX SODIUM [Suspect]
     Active Substance: DIVALPROEX SODIUM
     Indication: Seizure
     Dosage: 750 MG TWICE A DAY ORAL?
     Route: 048
     Dates: start: 20240612, end: 20240625
  3. CHOLECALCIFEROL [Concomitant]
  4. APAP [Concomitant]
  5. ALOH/MGOH/SIMTH. LIQU [Concomitant]
  6. SENNA [Concomitant]
  7. ZYPREXA ZYDIS [Concomitant]

REACTIONS (4)
  - Confusional state [None]
  - Mental status changes [None]
  - Paranoia [None]
  - Hallucination [None]

NARRATIVE: CASE EVENT DATE: 20240625
